FAERS Safety Report 23684046 (Version 1)
Quarter: 2024Q1

REPORT INFORMATION
  Report Type: Spontaneous
  Country: JP (occurrence: JP)
  Receive Date: 20240328
  Receipt Date: 20240328
  Transmission Date: 20240409
  Serious: Yes (Death, Other)
  Sender: FDA-Public Use
  Company Number: JP-MSD-M2024-02690

PATIENT
  Age: 86 Year

DRUGS (1)
  1. KEYTRUDA [Suspect]
     Active Substance: PEMBROLIZUMAB
     Indication: Transitional cell carcinoma
     Dosage: 200 MILLIGRAM, Q3W
     Route: 041

REACTIONS (4)
  - Marasmus [Fatal]
  - Malignant neoplasm progression [Fatal]
  - Nephrotic syndrome [Unknown]
  - Decreased activity [Unknown]

NARRATIVE: CASE EVENT DATE: 20240101
